FAERS Safety Report 5990224-4 (Version None)
Quarter: 2008Q4

REPORT INFORMATION
  Report Type: 
  Country: None (occurrence: None)
  Receive Date: 20081211
  Receipt Date: 20081202
  Transmission Date: 20090506
  Serious: Yes (Life-Threatening)
  Sender: FDA-Public Use
  Company Number: DK-BAYER-200832324GPV

PATIENT
  Age: 65 Year
  Sex: Female
  Weight: 70 kg

DRUGS (2)
  1. FLUDARABINE PHOSPHATE [Suspect]
     Indication: CHRONIC LYMPHOCYTIC LEUKAEMIA
     Route: 042
     Dates: start: 20080425, end: 20080912
  2. CYCLOPHOSPHAMIDE [Suspect]
     Indication: CHRONIC LYMPHOCYTIC LEUKAEMIA
     Route: 042
     Dates: start: 20080425, end: 20080912

REACTIONS (1)
  - THROMBOTIC CEREBRAL INFARCTION [None]
